FAERS Safety Report 23128552 (Version 1)
Quarter: 2023Q4

REPORT INFORMATION
  Report Type: Other
  Country: HU (occurrence: HU)
  Receive Date: 20231031
  Receipt Date: 20231031
  Transmission Date: 20240109
  Serious: Yes (Other)
  Sender: FDA-Public Use
  Company Number: HU-ROCHE-3357506

PATIENT
  Age: 79 Year
  Sex: Female

DRUGS (4)
  1. RITUXIMAB [Suspect]
     Active Substance: RITUXIMAB
     Indication: Acquired haemophilia
     Dosage: DAYS 1, 8, 15, AND 22.
     Route: 065
  2. CYCLOPHOSPHAMIDE [Suspect]
     Active Substance: CYCLOPHOSPHAMIDE
     Indication: Acquired haemophilia
     Dosage: ON DAYS 1 AND 22
     Route: 065
  3. DEXAMETHASONE [Suspect]
     Active Substance: DEXAMETHASONE
     Indication: Acquired haemophilia
     Dosage: ON DAYS 1, 8, 15, AND 22,
     Route: 065
  4. FEIBA [Suspect]
     Active Substance: ANTI-INHIBITOR COAGULANT COMPLEX
     Indication: Acquired haemophilia
     Route: 065

REACTIONS (3)
  - Atrial thrombosis [Unknown]
  - Atrial fibrillation [Unknown]
  - Off label use [Unknown]
